FAERS Safety Report 9896927 (Version 2)
Quarter: 2014Q1

REPORT INFORMATION
  Report Type: Spontaneous
  Country: TW (occurrence: US)
  Receive Date: 20140214
  Receipt Date: 20140226
  Transmission Date: 20141002
  Serious: Yes (Other)
  Sender: FDA-Public Use
  Company Number: TW-009507513-1402TWN006101

PATIENT
  Age: 70 Year
  Sex: Female
  Weight: 53 kg

DRUGS (9)
  1. ERTAPENEM SODIUM [Suspect]
     Indication: ARTERIOVENOUS FISTULA SITE INFECTION
     Dosage: 500 MG PER DAY
  2. BISOPROLOL [Concomitant]
  3. CALCIUM CITRATE [Concomitant]
  4. FUROSEMIDE [Concomitant]
     Route: 048
  5. ISOSORBIDE MONONITRATE [Concomitant]
     Route: 048
  6. LANSOPRAZOLE [Concomitant]
  7. LERCANIDIPINE HYDROCHLORIDE [Concomitant]
  8. VALSARTAN [Concomitant]
  9. INSULIN [Concomitant]

REACTIONS (1)
  - Neurotoxicity [Recovered/Resolved]
